FAERS Safety Report 9036035 (Version 1)
Quarter: 2013Q1

REPORT INFORMATION
  Report Type: Report from Study
  Country: US (occurrence: US)
  Receive Date: 20130129
  Receipt Date: 20130129
  Transmission Date: 20140127
  Serious: No
  Sender: FDA-Public Use
  Company Number: US-ABBOTT-12P-163-0919292-00

PATIENT
  Sex: Male

DRUGS (3)
  1. HUMIRA 40 MG/ 0.8 ML PRE-FILLED SYRINGE [Suspect]
     Indication: PSORIATIC ARTHROPATHY
     Dates: start: 200910
  2. AVELOX [Suspect]
     Indication: PRODUCT USED FOR UNKNOWN INDICATION
  3. AUGMENTIN [Suspect]
     Indication: PRODUCT USED FOR UNKNOWN INDICATION

REACTIONS (5)
  - Sinusitis [Not Recovered/Not Resolved]
  - Ear infection [Unknown]
  - Dizziness [Unknown]
  - Pain [Unknown]
  - Pruritus generalised [Not Recovered/Not Resolved]
